FAERS Safety Report 7040298-7 (Version None)
Quarter: 2010Q4

REPORT INFORMATION
  Report Type: 
  Country: None (occurrence: None)
  Receive Date: 20101012
  Receipt Date: 20101004
  Transmission Date: 20110411
  Serious: Yes (Hospitalization, Other)
  Sender: FDA-Public Use
  Company Number: GB-PFIZER INC-2010117274

PATIENT
  Age: 50 Year
  Sex: Male

DRUGS (6)
  1. CABERGOLINE [Suspect]
     Indication: PARKINSON'S DISEASE
     Dosage: 3 MG, DAY
  2. CABERGOLINE [Suspect]
     Dosage: 6 MG, DAY
  3. AMANTADINE [Suspect]
     Indication: PARKINSON'S DISEASE
     Dosage: 100 MG, DAY
  4. LEVODOPA [Suspect]
     Indication: PARKINSON'S DISEASE
     Dosage: 500 MG, DAY
  5. LEVODOPA [Suspect]
     Dosage: 800 MG, DAY
  6. PERGOLIDE [Suspect]
     Indication: PARKINSON'S DISEASE
     Dosage: 3 MG, DAY

REACTIONS (4)
  - DOPAMINE DYSREGULATION SYNDROME [None]
  - DRUG ABUSE [None]
  - ON AND OFF PHENOMENON [None]
  - PARANOIA [None]
